FAERS Safety Report 15699744 (Version 1)
Quarter: 2018Q4

REPORT INFORMATION
  Report Type: Spontaneous
  Country: IT (occurrence: IT)
  Receive Date: 20181207
  Receipt Date: 20181207
  Transmission Date: 20190205
  Serious: Yes (Other)
  Sender: FDA-Public Use
  Company Number: IT-PFIZER INC-2018501261

PATIENT
  Age: 25 Year
  Sex: Female
  Weight: 75 kg

DRUGS (5)
  1. TOPAMAX [Suspect]
     Active Substance: TOPIRAMATE
     Dosage: 500 MG, SINGLE
     Route: 048
     Dates: start: 20181109, end: 20181109
  2. LORAZEPAM. [Suspect]
     Active Substance: LORAZEPAM
     Dosage: 10 MG, SINGLE
     Route: 048
     Dates: start: 20181109, end: 20181109
  3. ARIPIPRAZOLE. [Suspect]
     Active Substance: ARIPIPRAZOLE
     Dosage: 150 MG, SINGLE
     Route: 048
     Dates: start: 20181109, end: 20181109
  4. AKINETON [Suspect]
     Active Substance: BIPERIDEN HYDROCHLORIDE
     Dosage: UNK
     Route: 048
     Dates: start: 20181109, end: 20181109
  5. ALCOHOL. [Suspect]
     Active Substance: ALCOHOL
     Dosage: UNK
     Route: 048
     Dates: start: 20181109, end: 20181109

REACTIONS (4)
  - Intentional self-injury [Unknown]
  - Vomiting [Unknown]
  - Intentional overdose [Unknown]
  - Sopor [Unknown]

NARRATIVE: CASE EVENT DATE: 20181109
